FAERS Safety Report 4325873-2 (Version None)
Quarter: 2004Q1

REPORT INFORMATION
  Report Type: 
  Country: None (occurrence: None)
  Receive Date: 20040329
  Receipt Date: 20040317
  Transmission Date: 20041129
  Serious: Yes (Life-Threatening, Hospitalization, Disabling)
  Sender: FDA-Public Use
  Company Number: US-MERCK-0403USA02332

PATIENT
  Age: 89 Year
  Sex: Male

DRUGS (5)
  1. ZETIA [Suspect]
     Indication: HYPERLIPIDAEMIA
     Route: 048
     Dates: start: 20031121, end: 20031201
  2. ZETIA [Suspect]
     Indication: CORONARY ARTERY DISEASE
     Route: 048
     Dates: start: 20031121, end: 20031201
  3. FUROSEMIDE [Concomitant]
     Route: 065
  4. PRINIVIL [Concomitant]
     Route: 048
  5. POTASSIUM CHLORIDE [Concomitant]
     Route: 065

REACTIONS (1)
  - LOWER GASTROINTESTINAL HAEMORRHAGE [None]
